FAERS Safety Report 14088563 (Version 2)
Quarter: 2017Q4

REPORT INFORMATION
  Report Type: Report from Study
  Country: None (occurrence: FR)
  Receive Date: 20171013
  Receipt Date: 20171021
  Transmission Date: 20180321
  Serious: Yes (Death, Congenital Anomaly)
  Sender: FDA-Public Use
  Company Number: US-ABBVIE-17P-056-2126729-00

PATIENT
  Sex: Male

DRUGS (3)
  1. TRUVADA [Suspect]
     Active Substance: EMTRICITABINE\TENOFOVIR DISOPROXIL FUMARATE
     Indication: MATERNAL EXPOSURE TIMING UNSPECIFIED
     Route: 064
  2. RITONAVIR. [Suspect]
     Active Substance: RITONAVIR
     Indication: MATERNAL EXPOSURE TIMING UNSPECIFIED
     Route: 064
  3. REYATAZ [Suspect]
     Active Substance: ATAZANAVIR SULFATE
     Indication: MATERNAL EXPOSURE TIMING UNSPECIFIED
     Route: 064

REACTIONS (14)
  - Transposition of the great vessels [Unknown]
  - Foetal death [Fatal]
  - Single umbilical artery [Unknown]
  - Ventricular septal defect [Unknown]
  - Ventricular hypoplasia [Unknown]
  - Congenital aortic stenosis [Unknown]
  - Heterotaxia [Unknown]
  - Congenital coronary artery malformation [Unknown]
  - Pulmonary artery stenosis congenital [Unknown]
  - Persistent left superior vena cava [Unknown]
  - Pulmonary malformation [Unknown]
  - Anomalous pulmonary venous connection [Unknown]
  - Foetal exposure during pregnancy [Unknown]
  - Right aortic arch [Unknown]

NARRATIVE: CASE EVENT DATE: 20130402
